FAERS Safety Report 13177176 (Version 2)
Quarter: 2017Q3

REPORT INFORMATION
  Report Type: Report from Study
  Country: US (occurrence: US)
  Receive Date: 20170201
  Receipt Date: 20170731
  Transmission Date: 20171127
  Serious: No
  Sender: FDA-Public Use
  Company Number: US-EXELIXIS-CABO-16007329

PATIENT
  Age: 60 Year
  Sex: Male

DRUGS (1)
  1. CABOMETYX [Suspect]
     Active Substance: CABOZANTINIB S-MALATE
     Indication: PROSTATE CANCER
     Dosage: 60 MG, QD
     Route: 048
     Dates: start: 20161004

REACTIONS (5)
  - Diarrhoea [Unknown]
  - Nausea [Unknown]
  - Pruritus generalised [Unknown]
  - Headache [Unknown]
  - Off label use [Unknown]

NARRATIVE: CASE EVENT DATE: 201610
